FAERS Safety Report 6499088-6 (Version None)
Quarter: 2009Q4

REPORT INFORMATION
  Report Type: 
  Country: None (occurrence: None)
  Receive Date: 20091215
  Receipt Date: 20091207
  Transmission Date: 20100525
  Serious: No
  Sender: FDA-Public Use
  Company Number: US-B.I. PHARMACEUTICALS,INC./RIDGEFIELD-2009-BP-14105BP

PATIENT
  Sex: Female

DRUGS (8)
  1. COMBIVENT [Suspect]
     Indication: CHRONIC OBSTRUCTIVE PULMONARY DISEASE
     Dosage: 8 PUF
     Route: 055
     Dates: start: 20091001
  2. COMBIVENT [Suspect]
     Indication: SEASONAL ALLERGY
     Dosage: 8 PUF
     Route: 055
     Dates: start: 20081225, end: 20090101
  3. METOPROLOL [Concomitant]
     Indication: HYPERTENSION
     Dates: start: 19890101
  4. GLIPIZIDE [Concomitant]
     Indication: DIABETES MELLITUS
  5. FUROSEMIDE [Concomitant]
     Indication: FLUID RETENTION
     Dates: start: 19890101
  6. SIMVASTATIN [Concomitant]
     Indication: BLOOD CHOLESTEROL INCREASED
  7. OXYBUTYNIN CHLORIDE [Concomitant]
     Indication: BLADDER DISORDER
  8. ACTOS [Concomitant]
     Indication: DIABETES MELLITUS
     Dates: start: 20080101

REACTIONS (1)
  - ORAL PAIN [None]
